FAERS Safety Report 6838692-X (Version None)
Quarter: 2010Q3

REPORT INFORMATION
  Report Type: 
  Country: None (occurrence: None)
  Receive Date: 20100713
  Receipt Date: 20070609
  Transmission Date: 20110219
  Serious: No
  Sender: FDA-Public Use
  Company Number: US-PFIZER INC-2007047029

PATIENT
  Sex: Male
  Weight: 93 kg

DRUGS (2)
  1. CHANTIX [Suspect]
     Indication: SMOKING CESSATION THERAPY
     Dates: start: 20070517
  2. LOTREL [Concomitant]
     Indication: BLOOD PRESSURE
     Dates: start: 20060101

REACTIONS (1)
  - VOMITING [None]
